FAERS Safety Report 19682149 (Version 2)
Quarter: 2025Q4

REPORT INFORMATION
  Report Type: Spontaneous
  Country: EU (occurrence: EU)
  Receive Date: 20210810
  Receipt Date: 20251031
  Transmission Date: 20260117
  Serious: Yes (Life-Threatening, Other)
  Sender: MYLAN
  Company Number: EU-BEH-2021127052

PATIENT
  Age: 18 Year
  Sex: Male

DRUGS (16)
  1. DEXAMETHASONE [Suspect]
     Active Substance: DEXAMETHASONE
     Indication: Immune tolerance induction
     Dosage: 24 MILLIGRAM/SQ. METER, QD (DAY 1-4)
  2. DEXAMETHASONE [Suspect]
     Active Substance: DEXAMETHASONE
     Indication: Acquired haemophilia
  3. ANTIHEMOPHILIC FACTOR, HUMAN RECOMBINANT [Suspect]
     Active Substance: ANTIHEMOPHILIC FACTOR, HUMAN RECOMBINANT
     Indication: Acquired haemophilia
     Dosage: UNK
  4. CAMPATH [Suspect]
     Active Substance: ALEMTUZUMAB
     Indication: Acquired haemophilia
     Dosage: UNK
  5. CAMPATH [Suspect]
     Active Substance: ALEMTUZUMAB
     Indication: Immune tolerance induction
  6. CAMPATH [Suspect]
     Active Substance: ALEMTUZUMAB
     Indication: Factor VIII inhibition
  7. ANTIHEMOPHILIC FACTOR HUMAN [Suspect]
     Active Substance: ANTIHEMOPHILIC FACTOR HUMAN
     Indication: Acquired haemophilia
     Dosage: 2X100 U/KG/D, 2X50U/KG/D RESP
  8. ANTIHEMOPHILIC FACTOR HUMAN [Suspect]
     Active Substance: ANTIHEMOPHILIC FACTOR HUMAN
     Indication: Immune tolerance induction
  9. ANTIHEMOPHILIC FACTOR HUMAN [Suspect]
     Active Substance: ANTIHEMOPHILIC FACTOR HUMAN
     Indication: Anti factor VIII antibody test
  10. CELLCEPT [Suspect]
     Active Substance: MYCOPHENOLATE MOFETIL
     Indication: Immune tolerance induction
     Dosage: 600 MILLIGRAM/SQ. METER, QD (DAILY DOSE: 600 MG/M2 MILLIGRAM(S)/SQ. METER EVERY DAY)
  11. CELLCEPT [Suspect]
     Active Substance: MYCOPHENOLATE MOFETIL
     Indication: Acquired haemophilia
  12. RITUXIMAB [Suspect]
     Active Substance: RITUXIMAB
     Indication: Immune tolerance induction
     Dosage: 375 MILLIGRAM/SQ. METER
  13. RITUXIMAB [Suspect]
     Active Substance: RITUXIMAB
     Indication: Acquired haemophilia
  14. HUMAN IMMUNOGLOBULIN G [Suspect]
     Active Substance: HUMAN IMMUNOGLOBULIN G
     Indication: Immune tolerance induction
     Dosage: UNK
  15. CYCLOSPORINE [Suspect]
     Active Substance: CYCLOSPORINE
     Indication: Acquired haemophilia
     Dosage: UNK
  16. CYCLOSPORINE [Suspect]
     Active Substance: CYCLOSPORINE
     Indication: Factor VIII inhibition

REACTIONS (15)
  - Agranulocytosis [Recovered/Resolved]
  - Sepsis [Unknown]
  - Psychotic disorder [Unknown]
  - Rebound effect [Unknown]
  - Factor VIII inhibition [Recovering/Resolving]
  - Condition aggravated [Unknown]
  - Obesity [Unknown]
  - Cytomegalovirus infection reactivation [Recovered/Resolved]
  - Paronychia [Unknown]
  - Pneumonia [Unknown]
  - Skin infection [Unknown]
  - Drug ineffective [Unknown]
  - Off label use [Unknown]
  - Drug ineffective for unapproved indication [Unknown]
  - No adverse event [Unknown]
